FAERS Safety Report 10233095 (Version 1)
Quarter: 2014Q2

REPORT INFORMATION
  Report Type: Spontaneous
  Country: DE (occurrence: DE)
  Receive Date: 20140612
  Receipt Date: 20140612
  Transmission Date: 20141212
  Serious: Yes (Disabling, Other)
  Sender: FDA-Public Use
  Company Number: DE-ABBVIE-14P-062-1247108-00

PATIENT
  Age: 67 Year
  Sex: Female

DRUGS (3)
  1. ERGENYL CHRONO [Suspect]
     Indication: CONVULSION
     Dosage: EXTENDED RELEASE
     Route: 048
     Dates: start: 2012, end: 2013
  2. ERGENYL CHRONO [Suspect]
     Dosage: EXTENDED RELEASE
     Route: 048
     Dates: start: 2013
  3. RAMIPRIL [Concomitant]
     Indication: PRODUCT USED FOR UNKNOWN INDICATION

REACTIONS (5)
  - Electroencephalogram abnormal [Not Recovered/Not Resolved]
  - Fall [Unknown]
  - Upper limb fracture [Unknown]
  - Quality of life decreased [Unknown]
  - Tremor [Not Recovered/Not Resolved]
